FAERS Safety Report 7583195-0 (Version None)
Quarter: 2011Q2

REPORT INFORMATION
  Report Type: 
  Country: None (occurrence: None)
  Receive Date: 20110630
  Receipt Date: 20110627
  Transmission Date: 20111010
  Serious: Yes (Hospitalization)
  Sender: FDA-Public Use
  Company Number: US-B.I. PHARMACEUTICALS,INC./RIDGEFIELD-2011-BP-15347BP

PATIENT
  Age: 75 Year
  Sex: Female

DRUGS (9)
  1. IBUPROFEN [Concomitant]
     Dosage: AS NEEDED
  2. VENTOLIN HFA [Concomitant]
     Indication: CHRONIC OBSTRUCTIVE PULMONARY DISEASE
     Route: 055
  3. CRANBERRY [Concomitant]
     Indication: URINARY TRACT INFECTION
     Route: 048
  4. SYNTHROID [Concomitant]
     Indication: HYPOTHYROIDISM
     Dosage: 50 MCG
     Route: 048
  5. VITAMIN TAB [Concomitant]
     Indication: VITAMIN SUPPLEMENTATION
  6. VENTOLIN HFA [Concomitant]
  7. BENADRIL [Concomitant]
     Dosage: AS NEEDED
  8. SPIRIVA [Suspect]
     Indication: CHRONIC OBSTRUCTIVE PULMONARY DISEASE
     Dosage: 18 MCG
     Route: 055
     Dates: start: 20100601
  9. SPIRIVA [Suspect]
     Indication: SARCOIDOSIS

REACTIONS (1)
  - DIVERTICULITIS [None]
